FAERS Safety Report 11148562 (Version 1)
Quarter: 2015Q2

REPORT INFORMATION
  Report Type: Spontaneous
  Country: US (occurrence: None)
  Receive Date: 20150527
  Receipt Date: 20150527
  Transmission Date: 20150821
  Serious: Yes (Hospitalization, Other)
  Sender: FDA-Public Use
  Company Number: AMAG201500467

PATIENT
  Sex: Female

DRUGS (1)
  1. MAKENA [Suspect]
     Active Substance: HYDROXYPROGESTERONE CAPROATE
     Indication: PREMATURE DELIVERY
     Dosage: 250 MG, WEEKLY  X 5 DOSES
     Route: 030
     Dates: start: 20150204

REACTIONS (5)
  - Maternal exposure during pregnancy [None]
  - Premature delivery [None]
  - Uterine contractions during pregnancy [None]
  - Cervix cerclage procedure [None]
  - Fibronectin increased [None]

NARRATIVE: CASE EVENT DATE: 20150330
